FAERS Safety Report 10191118 (Version 1)
Quarter: 2014Q2

REPORT INFORMATION
  Report Type: Spontaneous
  Country: US (occurrence: None)
  Receive Date: 20140521
  Receipt Date: 20140521
  Transmission Date: 20141212
  Serious: Yes (Hospitalization, Other)
  Sender: FDA-Public Use
  Company Number: None

PATIENT
  Age: 8 Year
  Sex: Female
  Weight: 25.3 kg

DRUGS (1)
  1. ENBREL 25 MG / 0.5 ML SRYINGE IMMUNEX CORP [Suspect]
     Dosage: APPROX 8-9 MONTHS?25 MG?ONCE WEEKLY ON MON?SUBCUTANEOUS
     Route: 058

REACTIONS (13)
  - Nausea [None]
  - Vomiting [None]
  - Pyrexia [None]
  - Fatigue [None]
  - Neck pain [None]
  - Headache [None]
  - Viral infection [None]
  - Vision blurred [None]
  - Memory impairment [None]
  - Tardive dyskinesia [None]
  - Convulsion [None]
  - Status epilepticus [None]
  - No therapeutic response [None]
